FAERS Safety Report 9989728 (Version 1)
Quarter: 2014Q1

REPORT INFORMATION
  Report Type: Spontaneous
  Country: US (occurrence: US)
  Receive Date: 20140310
  Receipt Date: 20140310
  Transmission Date: 20141002
  Serious: No
  Sender: FDA-Public Use
  Company Number: US-ABBVIE-13P-163-1130884-00

PATIENT
  Sex: Female
  Weight: 95.79 kg

DRUGS (12)
  1. HUMIRA [Suspect]
     Indication: RHEUMATOID ARTHRITIS
     Dates: end: 20130726
  2. FENTANYL PATCH [Concomitant]
     Indication: PAIN
  3. OXYCODONE [Concomitant]
     Indication: PAIN
  4. LYRICA [Concomitant]
     Indication: FIBROMYALGIA
  5. FLEXERIL [Concomitant]
     Indication: SLEEP DISORDER THERAPY
  6. LIDODERM PATCH [Concomitant]
     Indication: PAIN
  7. LEVOTHYROXINE [Concomitant]
     Indication: HYPOTHYROIDISM
  8. PRILOSEC [Concomitant]
     Indication: GASTROOESOPHAGEAL REFLUX DISEASE
  9. FLUOXETINE [Concomitant]
     Indication: DEPRESSION
  10. KLONOPIN [Concomitant]
     Indication: ANXIETY
  11. MIRALAX [Concomitant]
     Indication: CONSTIPATION
  12. OXYBUTYNIN [Concomitant]
     Indication: BLADDER DISORDER

REACTIONS (1)
  - Drug ineffective [Not Recovered/Not Resolved]
